FAERS Safety Report 8553090-9 (Version None)
Quarter: 2012Q3

REPORT INFORMATION
  Report Type: 
  Country: None (occurrence: None)
  Receive Date: 20120731
  Receipt Date: 20120725
  Transmission Date: 20120928
  Serious: Yes (Hospitalization)
  Sender: FDA-Public Use
  Company Number: US-AMGEN-USASP2012046947

PATIENT
  Sex: Male

DRUGS (3)
  1. IRON [Concomitant]
  2. PREDNISONE [Concomitant]
  3. EPOGEN [Suspect]
     Indication: RENAL FAILURE CHRONIC
     Dosage: 20000 IU, 2 TIMES/WK

REACTIONS (4)
  - SERUM FERRITIN INCREASED [None]
  - HAEMOGLOBIN ABNORMAL [None]
  - BLISTER [None]
  - BLOOD IRON DECREASED [None]
